FAERS Safety Report 14778572 (Version 1)
Quarter: 2018Q2

REPORT INFORMATION
  Report Type: Spontaneous
  Country: FR (occurrence: FR)
  Receive Date: 20180419
  Receipt Date: 20180419
  Transmission Date: 20180711
  Serious: Yes (Hospitalization, Other)
  Sender: FDA-Public Use
  Company Number: FR-ASTRAZENECA-2018SE49531

PATIENT
  Age: 73 Year
  Sex: Male

DRUGS (8)
  1. LEFLUNOMIDE. [Concomitant]
     Active Substance: LEFLUNOMIDE
     Dates: start: 2014
  2. HYDROXYCHLOROQUINE [Concomitant]
     Active Substance: HYDROXYCHLOROQUINE
  3. AZITHROMYCIN ANHYDROUS. [Concomitant]
     Active Substance: AZITHROMYCIN ANHYDROUS
     Route: 048
  4. PREDNISONE. [Concomitant]
     Active Substance: PREDNISONE
     Dates: start: 2014
  5. TERBUTALINE [Suspect]
     Active Substance: TERBUTALINE
     Route: 065
  6. ATORVASTATIN [Concomitant]
     Active Substance: ATORVASTATIN
  7. TIOTROPIUM [Concomitant]
     Active Substance: TIOTROPIUM
     Route: 055
  8. ESOMEPRAZOLE [Suspect]
     Active Substance: ESOMEPRAZOLE
     Route: 048

REACTIONS (5)
  - Interstitial lung disease [Unknown]
  - Pseudomonas infection [Unknown]
  - Viral infection [Unknown]
  - Staphylococcal infection [Unknown]
  - Pneumothorax spontaneous [Unknown]

NARRATIVE: CASE EVENT DATE: 201501
